FAERS Safety Report 16626205 (Version 2)
Quarter: 2019Q4

REPORT INFORMATION
  Report Type: Spontaneous
  Country: US (occurrence: US)
  Receive Date: 20190724
  Receipt Date: 20191004
  Transmission Date: 20200122
  Serious: Yes (Death, Hospitalization, Other)
  Sender: FDA-Public Use
  Company Number: US-SA-2019SA200280

PATIENT
  Age: 65 Year
  Sex: Male
  Weight: 61.2 kg

DRUGS (5)
  1. IBUPROFEN. [Concomitant]
     Active Substance: IBUPROFEN
  2. PLAVIX [Suspect]
     Active Substance: CLOPIDOGREL BISULFATE
     Indication: STENT PLACEMENT
  3. HEPARIN [Concomitant]
     Active Substance: HEPARIN SODIUM
  4. PLAVIX [Suspect]
     Active Substance: CLOPIDOGREL BISULFATE
     Indication: PERIPHERAL VASCULAR DISORDER
     Dosage: 75 MG, QD
     Route: 048
  5. TRAMADOL. [Concomitant]
     Active Substance: TRAMADOL

REACTIONS (7)
  - Platelet count abnormal [Fatal]
  - Infection [Fatal]
  - Adverse event [Unknown]
  - Wound [Unknown]
  - Platelet count decreased [Unknown]
  - Myelodysplastic syndrome [Unknown]
  - Haemorrhoids [Fatal]
